FAERS Safety Report 9187287 (Version 1)
Quarter: 2013Q1

REPORT INFORMATION
  Report Type: Report from Study
  Country: CA (occurrence: CA)
  Receive Date: 20130325
  Receipt Date: 20130325
  Transmission Date: 20140127
  Serious: Yes (Other)
  Sender: FDA-Public Use
  Company Number: CA-JNJFOC-20130209512

PATIENT
  Age: 32 Year
  Sex: Female
  Weight: 74 kg

DRUGS (2)
  1. REMICADE [Suspect]
     Indication: COLITIS ULCERATIVE
     Route: 042
     Dates: start: 20130104
  2. PREDNISONE [Concomitant]
     Route: 065

REACTIONS (4)
  - Lupus-like syndrome [Unknown]
  - Pyrexia [Unknown]
  - Pain in extremity [Unknown]
  - Liver function test abnormal [Unknown]
